FAERS Safety Report 23089412 (Version 1)
Quarter: 2023Q4

REPORT INFORMATION
  Report Type: Spontaneous
  Country: US (occurrence: US)
  Receive Date: 20231020
  Receipt Date: 20231020
  Transmission Date: 20240110
  Serious: No
  Sender: FDA-Public Use
  Company Number: US-ALIMERA SCIENCES INC.-US-A16013-23-000096

PATIENT
  Age: 75 Year
  Sex: Female

DRUGS (1)
  1. ILUVIEN [Suspect]
     Active Substance: FLUOCINOLONE ACETONIDE
     Indication: Diabetic retinal oedema
     Dosage: 0.25 MICROGRAM, QD - RIGHT EYE
     Route: 031
     Dates: start: 20230412, end: 20230412

REACTIONS (2)
  - Product administration error [Unknown]
  - Medical device removal [Unknown]

NARRATIVE: CASE EVENT DATE: 20230412
